FAERS Safety Report 8251486-6 (Version None)
Quarter: 2012Q2

REPORT INFORMATION
  Report Type: 
  Country: None (occurrence: None)
  Receive Date: 20120402
  Receipt Date: 20120321
  Transmission Date: 20120825
  Serious: Yes (Death)
  Sender: FDA-Public Use
  Company Number: US-BRISTOL-MYERS SQUIBB COMPANY-16468613

PATIENT
  Age: 50 Year
  Sex: Male

DRUGS (1)
  1. ABILIFY [Suspect]

REACTIONS (3)
  - CARDIO-RESPIRATORY ARREST [None]
  - ANOREXIA NERVOSA [None]
  - CARDIAC DISORDER [None]
